FAERS Safety Report 9971707 (Version 1)
Quarter: 2013Q2

REPORT INFORMATION
  Report Type: Spontaneous
  Country: CN (occurrence: None)
  Receive Date: 20130610
  Receipt Date: 20130610
  Transmission Date: 20140414
  Serious: Yes (Hospitalization)
  Sender: FDA-Public Use
  Company Number: 2012S1000379

PATIENT
  Age: 43 Year
  Sex: Male

DRUGS (1)
  1. ATORVASTATIN CALCIUM (ATORVASTATIN CALCIUM) [Suspect]
     Indication: HYPERCHOLESTEROLAEMIA
     Route: 048
     Dates: start: 20120201, end: 201203

REACTIONS (2)
  - Detachment of retinal pigment epithelium [None]
  - Chorioretinopathy [None]
